FAERS Safety Report 9973239 (Version 2)
Quarter: 2014Q1

REPORT INFORMATION
  Report Type: Report from Study
  Country: US (occurrence: US)
  Receive Date: 20140306
  Receipt Date: 20140306
  Transmission Date: 20141002
  Serious: Yes (Other)
  Sender: FDA-Public Use
  Company Number: US-ABBVIE-13P-163-1147448-00

PATIENT
  Sex: Female

DRUGS (15)
  1. HUMIRA [Suspect]
     Indication: PSORIASIS
     Dosage: FIRST TWO INJECTIONS WERE SYRINGE
     Dates: start: 201102
  2. HUMIRA [Suspect]
     Indication: PSORIASIS
     Dates: end: 201203
  3. HUMIRA [Suspect]
     Dates: start: 20130815
  4. ACTOS [Suspect]
     Indication: DIABETES MELLITUS
  5. STELARA [Suspect]
     Indication: PRODUCT USED FOR UNKNOWN INDICATION
  6. MULTIVITAMINS [Concomitant]
     Indication: PRODUCT USED FOR UNKNOWN INDICATION
  7. PROAIR [Concomitant]
     Indication: PRODUCT USED FOR UNKNOWN INDICATION
     Route: 055
  8. TYLENOL [Concomitant]
     Indication: PRODUCT USED FOR UNKNOWN INDICATION
  9. METHOTREXATE [Concomitant]
     Indication: PSORIASIS
  10. METHOTREXATE [Concomitant]
  11. FOLIC ACID [Concomitant]
     Indication: PSORIASIS
  12. FOLIC ACID [Concomitant]
  13. SINGULAIR [Concomitant]
     Indication: PRODUCT USED FOR UNKNOWN INDICATION
     Dates: end: 2011
  14. UNKNOWN DIABETES MEDICATIONS [Concomitant]
     Indication: DIABETES MELLITUS
  15. JENTADUETO [Concomitant]
     Indication: DIABETES MELLITUS
     Dosage: 2.5MG/1000MG

REACTIONS (12)
  - Sinus operation [Unknown]
  - Hot flush [Not Recovered/Not Resolved]
  - Hot flush [Unknown]
  - Vitamin D decreased [Unknown]
  - Neuropathy peripheral [Unknown]
  - Heart rate increased [Unknown]
  - Diabetes mellitus inadequate control [Unknown]
  - Drug ineffective [Unknown]
  - Nausea [Unknown]
  - Drug effect decreased [Unknown]
  - Drug ineffective [Unknown]
  - Psoriasis [Unknown]
